FAERS Safety Report 4884541-9 (Version None)
Quarter: 2006Q1

REPORT INFORMATION
  Report Type: 
  Country: None (occurrence: None)
  Receive Date: 20060117
  Receipt Date: 20060102
  Transmission Date: 20060701
  Serious: Yes (Death)
  Sender: FDA-Public Use
  Company Number: 2006S1000004

PATIENT
  Age: 63 Year
  Sex: Male

DRUGS (10)
  1. CLOZAPINE [Suspect]
     Indication: SCHIZOPHRENIA
     Dosage: 75 MG; BID; ORAL
     Route: 048
     Dates: start: 20050711
  2. CLOZAPINE [Suspect]
     Dosage: 100 MG; BID; ORAL
     Route: 048
     Dates: start: 20050711
  3. GABAPENTIN [Concomitant]
  4. SIMVASTATIN [Concomitant]
  5. TAMSULOSIN HCL [Concomitant]
  6. FINASTERIDE [Concomitant]
  7. LANSOPRAZOLE [Concomitant]
  8. ESCITALOPRAM OXALATE [Concomitant]
  9. HALOPERIDOL [Concomitant]
  10. BENZTROPINE MESYLATE [Concomitant]

REACTIONS (1)
  - RESPIRATORY DISORDER [None]
